FAERS Safety Report 6772978-2 (Version None)
Quarter: 2010Q2

REPORT INFORMATION
  Report Type: 
  Country: None (occurrence: None)
  Receive Date: 20100616
  Receipt Date: 20100608
  Transmission Date: 20101027
  Serious: Yes (Hospitalization)
  Sender: FDA-Public Use
  Company Number: ES-CEPHALON-2010002679

PATIENT
  Sex: Female
  Weight: 46 kg

DRUGS (6)
  1. TREANDA [Suspect]
     Indication: CHRONIC LYMPHOCYTIC LEUKAEMIA
     Route: 042
     Dates: start: 20100415, end: 20100513
  2. RITUXIMAB [Suspect]
     Indication: CHRONIC LYMPHOCYTIC LEUKAEMIA
     Dates: start: 20100415, end: 20100513
  3. NABUMETONE [Concomitant]
     Dates: start: 20090101
  4. ATORVASTATIN [Concomitant]
     Dates: start: 20090101
  5. OMEPRAZOLE [Concomitant]
     Dates: start: 20090101
  6. DIOSMIN [Concomitant]
     Dates: start: 20090101

REACTIONS (2)
  - BACTERAEMIA [None]
  - ESCHERICHIA URINARY TRACT INFECTION [None]
